FAERS Safety Report 8722785 (Version 3)
Quarter: 2012Q4

REPORT INFORMATION
  Report Type: 
  Country: JP (occurrence: JP)
  Receive Date: 20120814
  Receipt Date: 20120906
  Transmission Date: 20130627
  Serious: Yes (Other)
  Sender: FDA-Public Use
  Company Number: JP-GLAXOSMITHKLINE-B0821894A

PATIENT
  Age: 78 Year
  Sex: Female

DRUGS (3)
  1. PAXIL [Suspect]
     Indication: DEPRESSION
     Dosage: 25MG Per day
     Route: 048
     Dates: start: 20120706, end: 20120708
  2. SOLANAX [Concomitant]
     Dosage: 1.2MG Per day
     Route: 048
     Dates: start: 20091028
  3. MUCOSTA [Concomitant]
     Dosage: 300MG Per day
     Route: 048
     Dates: start: 20100811

REACTIONS (1)
  - Altered state of consciousness [Recovered/Resolved]
